FAERS Safety Report 25376289 (Version 11)
Quarter: 2025Q3

REPORT INFORMATION
  Report Type: Report from Study
  Country: CA (occurrence: CA)
  Receive Date: 20250529
  Receipt Date: 20250928
  Transmission Date: 20251021
  Serious: Yes (Hospitalization)
  Sender: JOHNSON AND JOHNSON
  Company Number: CA-JNJFOC-20250532847

PATIENT
  Age: 12 Year
  Sex: Male
  Weight: 35 kg

DRUGS (5)
  1. REMICADE [Suspect]
     Active Substance: INFLIXIMAB
     Indication: Crohn^s disease
     Route: 041
     Dates: start: 20250502, end: 20250917
  2. REMICADE [Suspect]
     Active Substance: INFLIXIMAB
     Route: 041
     Dates: start: 20250502
  3. REMICADE [Suspect]
     Active Substance: INFLIXIMAB
     Route: 041
  4. REMICADE [Suspect]
     Active Substance: INFLIXIMAB
     Route: 041
  5. PREDNISONE [Concomitant]
     Active Substance: PREDNISONE
     Indication: Product used for unknown indication

REACTIONS (5)
  - Haemoglobin decreased [Unknown]
  - Crohn^s disease [Not Recovered/Not Resolved]
  - Drug level decreased [Recovering/Resolving]
  - Inappropriate schedule of product administration [Unknown]
  - Drug ineffective [Unknown]

NARRATIVE: CASE EVENT DATE: 20250526
